FAERS Safety Report 6646568-6 (Version None)
Quarter: 2010Q1

REPORT INFORMATION
  Report Type: 
  Country: None (occurrence: None)
  Receive Date: 20100323
  Receipt Date: 20100308
  Transmission Date: 20100710
  Serious: Yes (Other)
  Sender: FDA-Public Use
  Company Number: US-WATSON-2010-02143

PATIENT
  Sex: Female
  Weight: 83.4 kg

DRUGS (3)
  1. TRIVORA 28 (EE/LEVO) (0.03/0.05;0.04/0.075;0.03/0.125) (WATSON) [Suspect]
     Indication: CONTRACEPTION
     Dosage: 1 TABLET, DAILY
     Route: 048
     Dates: start: 20060101
  2. TRIPHASIL-21 [Suspect]
     Indication: CONTRACEPTION
     Dosage: 1 TABLET, DAILY
     Route: 048
  3. ENPRESSE [Suspect]
     Indication: CONTRACEPTION
     Dosage: 1 TABLET, DAILY
     Route: 048

REACTIONS (5)
  - FOCAL NODULAR HYPERPLASIA [None]
  - HEPATIC ADENOMA [None]
  - HEPATIC NEOPLASM [None]
  - HEPATIC STEATOSIS [None]
  - LIVER FUNCTION TEST ABNORMAL [None]
